FAERS Safety Report 5165048-0 (Version None)
Quarter: 2006Q4

REPORT INFORMATION
  Report Type: 
  Country: None (occurrence: None)
  Receive Date: 20061124
  Receipt Date: 20061113
  Transmission Date: 20070319
  Serious: Yes (Hospitalization)
  Sender: FDA-Public Use
  Company Number: 2006097924

PATIENT
  Age: 19 Year
  Sex: Male
  Weight: 63.7 kg

DRUGS (2)
  1. GENOTROPIN [Suspect]
     Indication: HYPOPITUITARISM
     Dosage: 0.4  MG (0.4 MG, DAILY, EVERY DAY), SUBCUTANEOUS
     Route: 058
     Dates: start: 20050101
  2. LEVOTHYROXINE SODIUM [Concomitant]

REACTIONS (4)
  - GASTROINTESTINAL DYSPLASIA [None]
  - PANCREATITIS [None]
  - PNEUMONIA [None]
  - RECTAL ADENOMA [None]
